FAERS Safety Report 11740168 (Version 2)
Quarter: 2015Q4

REPORT INFORMATION
  Report Type: Spontaneous
  Country: US (occurrence: US)
  Receive Date: 20151110
  Receipt Date: 20151120
  Transmission Date: 20160304
  Serious: No
  Sender: FDA-Public Use
  Company Number: US-ELI_LILLY_AND_COMPANY-US201206008287

PATIENT
  Age: 61 Year
  Sex: Female

DRUGS (3)
  1. FORTEO [Suspect]
     Active Substance: TERIPARATIDE
     Indication: OSTEOPOROSIS
     Dosage: UNK, QD
     Route: 065
     Dates: start: 201205
  2. FORTEO [Suspect]
     Active Substance: TERIPARATIDE
     Dosage: UNK, QD
     Route: 065
  3. FORTEO [Suspect]
     Active Substance: TERIPARATIDE
     Dosage: UNK, QD
     Route: 065
     Dates: end: 201209

REACTIONS (11)
  - Insomnia [Recovering/Resolving]
  - Dizziness [Recovering/Resolving]
  - Dysgeusia [Recovered/Resolved]
  - Secretion discharge [Recovering/Resolving]
  - Upper respiratory tract congestion [Recovered/Resolved]
  - Hyperhidrosis [Recovering/Resolving]
  - Upper respiratory tract congestion [Recovering/Resolving]
  - Decreased appetite [Recovering/Resolving]
  - Injection site erythema [Recovering/Resolving]
  - Headache [Recovering/Resolving]
  - Nausea [Recovering/Resolving]

NARRATIVE: CASE EVENT DATE: 2012
